FAERS Safety Report 9022818 (Version 1)
Quarter: 2013Q1

REPORT INFORMATION
  Report Type: Spontaneous
  Country: US (occurrence: US)
  Receive Date: 20130120
  Receipt Date: 20130120
  Transmission Date: 20140127
  Serious: No
  Sender: FDA-Public Use
  Company Number: US-ALLERGAN-1217492US

PATIENT
  Sex: Female

DRUGS (4)
  1. BOTOX? [Suspect]
     Indication: MIGRAINE
     Dosage: 400 UNITS, SINGLE
     Route: 030
     Dates: start: 20121029, end: 20121029
  2. BOTOX? [Suspect]
     Indication: DYSTONIA
  3. BOTOX? [Suspect]
     Indication: TORTICOLLIS
  4. CYMBALTA [Concomitant]
     Indication: PRODUCT USED FOR UNKNOWN INDICATION
     Dosage: 60 MG, BID
     Route: 048

REACTIONS (1)
  - Drug ineffective [Unknown]
